FAERS Safety Report 22087511 (Version 1)
Quarter: 2023Q1

REPORT INFORMATION
  Report Type: Spontaneous
  Country: DK (occurrence: DK)
  Receive Date: 20230313
  Receipt Date: 20230313
  Transmission Date: 20230417
  Serious: Yes (Other)
  Sender: FDA-Public Use
  Company Number: DK-NOVOPROD-1004608

PATIENT
  Age: 71 Year
  Sex: Male
  Weight: 85 kg

DRUGS (7)
  1. OZEMPIC [Suspect]
     Active Substance: SEMAGLUTIDE
     Indication: Type 2 diabetes mellitus
     Dosage: 1 MG, QW
     Route: 058
     Dates: start: 20211029
  2. ELTROXIN LF [Concomitant]
     Indication: Prophylaxis
     Dosage: 50 ?G (5 TABLETS A WEEK)
     Route: 048
     Dates: start: 20141114
  3. HJERTEALBYL [Concomitant]
     Indication: Prophylaxis
     Dosage: 75 MG, QD (TABLET)
     Route: 048
  4. SYNJARDY [Concomitant]
     Active Substance: EMPAGLIFLOZIN\METFORMIN HYDROCHLORIDE
     Indication: Type 2 diabetes mellitus
     Dosage: DAILY DOSAGE: 2 TABLETS
     Route: 048
     Dates: start: 20220802
  5. LOSARTAN [Concomitant]
     Active Substance: LOSARTAN
     Indication: Hypertension
     Dosage: 50 MG, QD
     Route: 048
     Dates: start: 20141114
  6. SIMVASTATIN [Concomitant]
     Active Substance: SIMVASTATIN
     Indication: Blood cholesterol increased
     Dosage: 40 MG, QD
     Dates: start: 20180720
  7. APOVIT D3 [Concomitant]
     Indication: Vitamin D deficiency
     Dosage: 25 ?G, QD
     Dates: start: 20120115

REACTIONS (1)
  - Floppy iris syndrome [Recovered/Resolved]

NARRATIVE: CASE EVENT DATE: 20221107
